FAERS Safety Report 21993028 (Version 1)
Quarter: 2023Q1

REPORT INFORMATION
  Report Type: Spontaneous
  Country: US (occurrence: US)
  Receive Date: 20230215
  Receipt Date: 20230215
  Transmission Date: 20230417
  Serious: No
  Sender: FDA-Public Use
  Company Number: US-PERRIGO-22US003517

PATIENT
  Age: 81 Year
  Sex: Male
  Weight: 77.1 kg

DRUGS (7)
  1. OMEPRAZOLE [Suspect]
     Active Substance: OMEPRAZOLE
     Indication: Dyspepsia
     Dosage: 20 MG, SINGLE
     Route: 048
     Dates: start: 20220303, end: 20220303
  2. CELEBREX [Concomitant]
     Active Substance: CELECOXIB
     Indication: Back pain
     Dosage: UNK
     Route: 065
  3. FEXOFENADINE [Concomitant]
     Active Substance: FEXOFENADINE HYDROCHLORIDE
     Indication: Perennial allergy
     Dosage: UNK
     Route: 065
     Dates: start: 1990
  4. GABAPENTIN [Concomitant]
     Active Substance: GABAPENTIN
     Indication: Nerve injury
     Dosage: UNK
     Route: 065
     Dates: start: 2005
  5. HYDROCHLOROTHIAZIDE [Concomitant]
     Active Substance: HYDROCHLOROTHIAZIDE
     Indication: Hypertension
     Dosage: UNK
     Route: 065
     Dates: start: 2002
  6. MUCINEX [Concomitant]
     Active Substance: GUAIFENESIN
     Indication: Productive cough
     Dosage: UNK
     Route: 065
  7. VITAMINS NOS [Concomitant]
     Active Substance: VITAMINS
     Indication: Supplementation therapy
     Dosage: UNK
     Route: 065

REACTIONS (3)
  - Dizziness [Not Recovered/Not Resolved]
  - Somnolence [Not Recovered/Not Resolved]
  - Fatigue [Not Recovered/Not Resolved]

NARRATIVE: CASE EVENT DATE: 20220303
